FAERS Safety Report 6237247-8 (Version None)
Quarter: 2009Q2

REPORT INFORMATION
  Report Type: 
  Country: None (occurrence: None)
  Receive Date: 20090619
  Receipt Date: 20090224
  Transmission Date: 20091009
  Serious: No
  Sender: FDA-Public Use
  Company Number: US-BAYER-200910680BCC

PATIENT
  Age: 67 Year
  Sex: Female
  Weight: 59 kg

DRUGS (5)
  1. ALEVE [Suspect]
     Indication: ARTHRALGIA
     Dosage: UNIT DOSE: 220 MG
     Dates: start: 20090101, end: 20090224
  2. ACTONEL [Concomitant]
  3. SIMVASTATIN [Concomitant]
  4. MULTI-VITAMIN [Concomitant]
  5. JANUMET [Concomitant]

REACTIONS (1)
  - URTICARIA [None]
